FAERS Safety Report 5356807-X (Version None)
Quarter: 2007Q2

REPORT INFORMATION
  Report Type: 
  Country: None (occurrence: None)
  Receive Date: 20070614
  Receipt Date: 20060620
  Transmission Date: 20071010
  Serious: No
  Sender: FDA-Public Use
  Company Number: US-ASTRAZENECA-2006UW13083

PATIENT
  Age: 86 Year
  Sex: Female
  Weight: 72.1 kg

DRUGS (7)
  1. ATACAND [Suspect]
     Indication: HYPERTENSION
     Route: 048
     Dates: start: 20060511
  2. ATACAND [Suspect]
     Indication: CARDIAC FAILURE CONGESTIVE
     Route: 048
     Dates: start: 20060511
  3. SYNTHROID [Concomitant]
  4. OMEPRAZOLE [Concomitant]
  5. METOPROLOL SUCCINATE [Concomitant]
  6. LASIX [Concomitant]
  7. IRON [Concomitant]
     Indication: MINERAL SUPPLEMENTATION

REACTIONS (1)
  - VISUAL DISTURBANCE [None]
